FAERS Safety Report 5778306-3 (Version None)
Quarter: 2008Q2

REPORT INFORMATION
  Report Type: 
  Country: None (occurrence: None)
  Receive Date: 20080619
  Receipt Date: 20070717
  Transmission Date: 20081010
  Serious: Yes (Other)
  Sender: FDA-Public Use
  Company Number: A0665835A

PATIENT
  Sex: Female

DRUGS (4)
  1. THORAZINE [Suspect]
     Indication: DRUG USE FOR UNKNOWN INDICATION
     Route: 065
  2. INVEGA [Suspect]
     Indication: SCHIZOPHRENIA
     Dosage: 6MG PER DAY
     Route: 048
     Dates: start: 20070101, end: 20070101
  3. SEMISODIUM VALPROATE [Suspect]
     Indication: DRUG USE FOR UNKNOWN INDICATION
     Route: 065
  4. LAMICTAL [Concomitant]

REACTIONS (1)
  - AGRANULOCYTOSIS [None]
